FAERS Safety Report 8267903-1 (Version None)
Quarter: 2012Q2

REPORT INFORMATION
  Report Type: 
  Country: None (occurrence: None)
  Receive Date: 20120409
  Receipt Date: 20120330
  Transmission Date: 20120825
  Serious: Yes (Hospitalization, Other)
  Sender: FDA-Public Use
  Company Number: JP-BRISTOL-MYERS SQUIBB COMPANY-16412066

PATIENT
  Age: 65 Year
  Sex: Male

DRUGS (16)
  1. METFORMIN HCL [Suspect]
     Indication: TYPE 2 DIABETES MELLITUS
     Route: 048
     Dates: start: 20120113, end: 20120202
  2. NEULEPTIL [Concomitant]
     Indication: SCHIZOPHRENIA
     Route: 048
  3. HALOPERIDOL [Concomitant]
     Indication: SCHIZOPHRENIA
     Route: 048
  4. GLYCYRRHIZA [Concomitant]
     Indication: GASTRITIS
     Route: 048
  5. ENALAPRIL MALEATE [Concomitant]
     Indication: HYPERTENSION
     Route: 048
     Dates: start: 20120203
  6. SITAGLIPTIN PHOSPHATE [Concomitant]
  7. GLYBURIDE [Concomitant]
  8. NATEGLINIDE [Concomitant]
     Indication: DIABETES MELLITUS
     Route: 048
     Dates: end: 20120202
  9. GLUCOBAY [Concomitant]
     Indication: DIABETES MELLITUS
     Route: 048
  10. PARKIN [Concomitant]
     Indication: SCHIZOPHRENIA
     Route: 048
  11. FORIT [Concomitant]
     Indication: SCHIZOPHRENIA
     Route: 048
  12. JANUVIA [Concomitant]
     Indication: DIABETES MELLITUS
     Route: 048
  13. MAGNESIUM OXIDE [Concomitant]
     Indication: CONSTIPATION
     Route: 048
  14. LAXOBERON [Concomitant]
     Indication: CONSTIPATION
     Route: 048
  15. EPADEL [Concomitant]
     Indication: DYSLIPIDAEMIA
     Route: 048
  16. GLYBURIDE [Concomitant]
     Indication: DIABETES MELLITUS
     Route: 048
     Dates: end: 20120113

REACTIONS (2)
  - OEDEMA [None]
  - CARDIAC FAILURE [None]
